FAERS Safety Report 5806207-0 (Version None)
Quarter: 2008Q3

REPORT INFORMATION
  Report Type: 
  Country: None (occurrence: None)
  Receive Date: 20080709
  Receipt Date: 20080709
  Transmission Date: 20090109
  Serious: Yes (Disabling)
  Sender: FDA-Public Use
  Company Number: None

PATIENT
  Sex: Female

DRUGS (5)
  1. MARCAINE HYDROCHLORIDE W/ EPINEPHRINE [Suspect]
     Indication: ROTATOR CUFF SYNDROME
     Dosage: 270 CC 014
     Dates: start: 20010621
  2. LIDOCAINE AND EPINEPHRINE [Suspect]
     Indication: CHONDROPATHY
     Dosage: 300 CC 014
     Dates: start: 20020808
  3. PAIN BUSTER [Concomitant]
  4. ZIMMER [Concomitant]
  5. PALM PUMP [Concomitant]

REACTIONS (1)
  - CHONDROPLASTY [None]
